FAERS Safety Report 8891964 (Version 1)
Quarter: 2012Q4

REPORT INFORMATION
  Report Type: 
  Country: US (occurrence: None)
  Receive Date: 20121105
  Receipt Date: 20121105
  Transmission Date: 20130627
  Serious: Yes (Hospitalization)
  Sender: FDA-Public Use
  Company Number: None

PATIENT
  Sex: Female
  Weight: 157.5 kg

DRUGS (1)
  1. ERBITUX [Suspect]

REACTIONS (3)
  - Stomatitis [None]
  - Alanine aminotransferase increased [None]
  - Aspartate aminotransferase increased [None]
